FAERS Safety Report 4543967-3 (Version None)
Quarter: 2005Q1

REPORT INFORMATION
  Report Type: 
  Country: None (occurrence: None)
  Receive Date: 20050103
  Receipt Date: 20030207
  Transmission Date: 20050727
  Serious: Yes (Hospitalization, Other)
  Sender: FDA-Public Use
  Company Number: GXKR2003GB00484

PATIENT
  Age: 1 Year
  Sex: Male
  Weight: 10.7 kg

DRUGS (1)
  1. DIAZEPAM [Suspect]
     Indication: FEBRILE CONVULSION
     Dosage: 5 MG, QD, RECTAL
     Route: 054
     Dates: start: 20041215, end: 20041215

REACTIONS (1)
  - APNOEIC ATTACK [None]
